FAERS Safety Report 25559139 (Version 1)
Quarter: 2025Q3

REPORT INFORMATION
  Report Type: Spontaneous
  Country: US (occurrence: US)
  Receive Date: 20250715
  Receipt Date: 20250715
  Transmission Date: 20251021
  Serious: No
  Sender: NOVO NORDISK
  Company Number: US-NOVOPROD-1415523

PATIENT
  Age: 63 Year

DRUGS (2)
  1. OZEMPIC [Suspect]
     Active Substance: SEMAGLUTIDE
     Indication: Type 2 diabetes mellitus
     Dosage: 0.25 MG, QW
     Route: 058
     Dates: start: 20250126, end: 20250212
  2. NovoFine Plus 4mm (32G) [Concomitant]
     Indication: Device therapy

REACTIONS (3)
  - Thermal burn [Not Recovered/Not Resolved]
  - Blister [Not Recovered/Not Resolved]
  - Injection site exfoliation [Recovering/Resolving]

NARRATIVE: CASE EVENT DATE: 20250209
